FAERS Safety Report 25985497 (Version 2)
Quarter: 2025Q4

REPORT INFORMATION
  Report Type: Spontaneous
  Country: US (occurrence: US)
  Receive Date: 20251031
  Receipt Date: 20251118
  Transmission Date: 20260119
  Serious: No
  Sender: INCYTE
  Company Number: US-EVENT-004737

PATIENT

DRUGS (1)
  1. OPZELURA [Suspect]
     Active Substance: RUXOLITINIB PHOSPHATE
     Indication: Eczema
     Dosage: AT LEAST 6 NIGHTS A WEEK WHEN WAKE UP WITH THIS AND THEN ONCE DURING THE DAY
     Route: 065

REACTIONS (3)
  - Off label use [Unknown]
  - Product physical consistency issue [Unknown]
  - Product container issue [Unknown]
